FAERS Safety Report 5842835-4 (Version None)
Quarter: 2008Q3

REPORT INFORMATION
  Report Type: 
  Country: None (occurrence: None)
  Receive Date: 20080812
  Receipt Date: 20080812
  Transmission Date: 20090109
  Serious: No
  Sender: FDA-Public Use
  Company Number: None

PATIENT
  Sex: Male

DRUGS (2)
  1. MINOCYCLIN  100MG [Suspect]
     Indication: FOLLICULITIS
     Dosage: 100 MG DAILY PO
     Route: 048
     Dates: start: 20030801, end: 20050401
  2. SUMYCIN [Suspect]
     Indication: FOLLICULITIS
     Dosage: 500MG BID PO
     Route: 048
     Dates: start: 20050401, end: 20060601

REACTIONS (3)
  - DRUG INEFFECTIVE [None]
  - GASTROINTESTINAL DISORDER [None]
  - THERAPEUTIC RESPONSE UNEXPECTED WITH DRUG SUBSTITUTION [None]
